FAERS Safety Report 14475684 (Version 2)
Quarter: 2018Q1

REPORT INFORMATION
  Report Type: Spontaneous
  Country: GB (occurrence: GB)
  Receive Date: 20180201
  Receipt Date: 20180228
  Transmission Date: 20180509
  Serious: Yes (Death, Other)
  Sender: FDA-Public Use
  Company Number: GB-BRISTOL-MYERS SQUIBB COMPANY-BMS-2018-006406

PATIENT
  Age: 59 Year
  Sex: Male

DRUGS (2)
  1. HYDROCORTISONE. [Concomitant]
     Active Substance: HYDROCORTISONE
     Indication: PRODUCT USED FOR UNKNOWN INDICATION
     Route: 065
  2. LYSODREN [Suspect]
     Active Substance: MITOTANE
     Indication: LEYDIG CELL TUMOUR OF THE TESTIS
     Route: 065

REACTIONS (5)
  - Metastases to abdominal cavity [Unknown]
  - Metastases to lung [Unknown]
  - Death [Fatal]
  - Therapeutic response unexpected [Unknown]
  - Product use in unapproved indication [Unknown]
